FAERS Safety Report 10057821 (Version 2)
Quarter: 2014Q2

REPORT INFORMATION
  Report Type: Report from Study
  Country: US (occurrence: US)
  Receive Date: 20140404
  Receipt Date: 20140607
  Transmission Date: 20141212
  Serious: Yes (Hospitalization)
  Sender: FDA-Public Use
  Company Number: PHHO2014US004462

PATIENT
  Age: 71 Year
  Sex: Male
  Weight: 115.65 kg

DRUGS (33)
  1. BLINDED NO TREATMENT RECEIVED [Suspect]
     Indication: CARDIAC FAILURE ACUTE
     Dosage: CODE NOT BROKEN (CONTINUOUS IV INFUSION FOR 48 HOURS)
     Route: 042
     Dates: start: 20140311, end: 20140313
  2. BLINDED PLACEBO [Suspect]
     Indication: CARDIAC FAILURE ACUTE
     Dosage: CODE NOT BROKEN (CONTINUOUS IV INFUSION FOR 48 HOURS)
     Route: 042
     Dates: start: 20140311, end: 20140313
  3. BLINDED RLX030 [Suspect]
     Indication: CARDIAC FAILURE ACUTE
     Dosage: CODE NOT BROKEN (CONTINUOUS IV INFUSION FOR 48 HOURS)
     Route: 042
     Dates: start: 20140311, end: 20140313
  4. GABAPENTINE APOTEX [Suspect]
     Indication: NEUROPATHY PERIPHERAL
     Dosage: 600 MG, BID
     Route: 048
     Dates: start: 20080814, end: 20140318
  5. GABAPENTINE APOTEX [Suspect]
     Dosage: UNK
     Route: 048
     Dates: start: 20140318
  6. ALBUTEROL [Concomitant]
     Indication: DYSPNOEA
     Dosage: 90 UG/1 PUFF, QID PRN
     Route: 055
  7. ALPRAZOLAM [Concomitant]
     Indication: ANXIETY
     Dosage: 0.125 MG, QID PRN
     Route: 048
  8. AMLODIPINE BESYLATE [Concomitant]
     Dosage: 10 MG QAM, 5 MG QPM
     Route: 048
  9. CAMPHOR, MENTHOL, MENTHYL SALICYLATE [Concomitant]
     Indication: PRURITUS
     Dosage: UNK, QID PRN
     Route: 061
  10. CETIRIZINE [Concomitant]
     Dosage: 20 MG, QD
     Route: 048
  11. CLONIDINE HCL [Concomitant]
     Dosage: 0.3 MG, TID
     Route: 048
  12. CLOPIDOGREL BISULFATE [Concomitant]
     Dosage: 75 MG, QD
     Route: 048
  13. DOCUSATE W/SENNOSIDE A+B [Concomitant]
     Indication: CONSTIPATION
     Dosage: 50 MG +8.6 MG, BID PRN
     Route: 048
  14. FENOFIBRATE [Concomitant]
     Dosage: 145 MG, QD
     Route: 048
  15. FLUTICASONE PROPIONATE [Concomitant]
     Dosage: 50 UG 120 D, 1-2 SPRAYS IN EACH NOSTRIL, QD
     Route: 045
  16. FUROSEMIDE [Concomitant]
     Dosage: 80 MG, BID
     Route: 048
  17. HYDRALAZINE HCL [Concomitant]
     Dosage: 100 MG, QID
     Route: 048
  18. INSULINE NPH [Concomitant]
     Dosage: 35 U, BID
     Route: 058
  19. INSULIN REGULAR HM [Concomitant]
     Dosage: 20 U, TID BEFORE MEALS
     Route: 058
  20. IPRATROPIUM [Concomitant]
     Indication: DYSPNOEA
     Dosage: 0.02% SOLUTION, 1 CONTAINER IN NEBULIZER, QID
     Route: 055
  21. ISOSORBIDE MONONITRATE [Concomitant]
     Dosage: 240 MG, QD
     Route: 048
  22. MAGNESIUM OXIDE [Concomitant]
     Dosage: 210 MG, QD
     Route: 048
  23. MICONAZOLE NITRATE [Concomitant]
     Dosage: UNK, BID
     Route: 061
  24. MINOCYCLINE [Concomitant]
     Indication: CHRONIC OBSTRUCTIVE PULMONARY DISEASE
     Dosage: 100 MG, BID
     Route: 048
  25. MOMETASONE FUROATE [Concomitant]
     Dosage: 220 UG (1 PUFF), BID
     Route: 055
  26. NITROSTAT [Concomitant]
     Indication: CHEST PAIN
     Dosage: 0.4 MG, PRN
     Route: 060
  27. OMEPRAZOLE [Concomitant]
     Dosage: 40 MG, QD
     Route: 048
  28. PAROXETINE HCL [Concomitant]
     Dosage: 20 MG, QD
     Route: 048
  29. PREDNISONE [Concomitant]
     Indication: DYSPNOEA
     Dosage: 40 MG, QAM
     Route: 048
  30. PREDNISONE [Concomitant]
     Indication: CHRONIC OBSTRUCTIVE PULMONARY DISEASE
  31. SIMVASTATIN [Concomitant]
     Dosage: 20 MG, QHS
     Route: 048
  32. MULTI-VIT [Concomitant]
     Dosage: 1 DF, QD
     Route: 048
  33. ACETAMINOPHEN [Concomitant]
     Indication: PAIN
     Dosage: 650 MG, TID AS NEEDED
     Route: 048

REACTIONS (3)
  - Fall [Recovered/Resolved]
  - Neuropathy peripheral [Recovered/Resolved]
  - Asthenia [Recovered/Resolved]
